FAERS Safety Report 17017937 (Version 1)
Quarter: 2019Q4

REPORT INFORMATION
  Report Type: Report from Study
  Country: CA (occurrence: CA)
  Receive Date: 20191111
  Receipt Date: 20191111
  Transmission Date: 20200122
  Serious: Yes (Death)
  Sender: FDA-Public Use
  Company Number: PHHY2019CA006437

PATIENT
  Sex: Male

DRUGS (2)
  1. GLEEVEC [Suspect]
     Active Substance: IMATINIB MESYLATE
     Indication: GASTROINTESTINAL STROMAL TUMOUR
     Dosage: 400 MG, QD
     Route: 048
     Dates: start: 20180712
  2. GLEEVEC [Suspect]
     Active Substance: IMATINIB MESYLATE
     Dosage: 400 MG, QD
     Route: 048
     Dates: start: 20181129

REACTIONS (10)
  - Myalgia [Unknown]
  - Joint swelling [Unknown]
  - Arthropathy [Unknown]
  - White blood cell count decreased [Unknown]
  - Death [Fatal]
  - Hypophagia [Unknown]
  - Muscle spasms [Not Recovered/Not Resolved]
  - Abdominal distension [Unknown]
  - Pain in extremity [Unknown]
  - Dyspepsia [Unknown]
